FAERS Safety Report 10430757 (Version 1)
Quarter: 2014Q3

REPORT INFORMATION
  Report Type: Spontaneous
  Country: US (occurrence: None)
  Receive Date: 20140903
  Receipt Date: 20140903
  Transmission Date: 20150326
  Serious: Yes (Hospitalization)
  Sender: FDA-Public Use
  Company Number: None

PATIENT
  Age: 77 Year
  Sex: Male
  Weight: 92.6 kg

DRUGS (2)
  1. SULFAMETHOXAZOLE/TRIMETHOPRIM [Suspect]
     Active Substance: SULFAMETHOXAZOLE\TRIMETHOPRIM
     Indication: CELLULITIS
     Dosage: 2 TAB, BID, PO
     Route: 048
     Dates: start: 20140512, end: 20140520
  2. LISINOPRIL. [Suspect]
     Active Substance: LISINOPRIL
     Indication: HYPERTENSION
     Dosage: 1 TAB, EVERY DAY, PO?
     Route: 048
     Dates: start: 20140311

REACTIONS (2)
  - Renal failure acute [None]
  - Hyponatraemia [None]

NARRATIVE: CASE EVENT DATE: 20140520
